FAERS Safety Report 9595276 (Version 1)
Quarter: 2013Q4

REPORT INFORMATION
  Report Type: Spontaneous
  Country: US (occurrence: US)
  Receive Date: 20131004
  Receipt Date: 20131004
  Transmission Date: 20140711
  Serious: No
  Sender: FDA-Public Use
  Company Number: US-PFIZER INC-2013281270

PATIENT
  Age: 67 Year
  Sex: Male

DRUGS (7)
  1. SUTENT [Suspect]
     Indication: RENAL CANCER
     Dosage: UNK
     Dates: start: 20130909
  2. ATORVASTATIN CALCIUM [Concomitant]
     Dosage: UNK
  3. WARFARIN SODIUM [Concomitant]
     Dosage: UNK
  4. CAPTOPRIL [Concomitant]
     Dosage: UNK
  5. COREG [Concomitant]
     Dosage: UNK
  6. HEPARIN SODIUM [Concomitant]
     Dosage: UNK
  7. LIPITOR [Concomitant]

REACTIONS (3)
  - Nausea [Unknown]
  - Fatigue [Unknown]
  - Hypertension [Unknown]
